FAERS Safety Report 13948501 (Version 1)
Quarter: 2017Q3

REPORT INFORMATION
  Report Type: Spontaneous
  Country: CA (occurrence: CA)
  Receive Date: 20170908
  Receipt Date: 20170908
  Transmission Date: 20171128
  Serious: Yes (Life-Threatening, Hospitalization, Disabling)
  Sender: FDA-Public Use
  Company Number: PHHY2017CA132563

PATIENT
  Age: 88 Year
  Sex: Male

DRUGS (1)
  1. TASIGNA [Suspect]
     Active Substance: NILOTINIB
     Indication: CHRONIC MYELOID LEUKAEMIA
     Dosage: 200 MG, BID (2 EVERY 1 DAY)
     Route: 048

REACTIONS (3)
  - Ischaemic skin ulcer [Recovered/Resolved]
  - Peripheral arterial occlusive disease [Recovered/Resolved]
  - Skin ulcer [Recovered/Resolved]
